FAERS Safety Report 5125708-4 (Version None)
Quarter: 2006Q4

REPORT INFORMATION
  Report Type: 
  Country: None (occurrence: None)
  Receive Date: 20061012
  Receipt Date: 20061008
  Transmission Date: 20070319
  Serious: Yes (Death, Hospitalization)
  Sender: FDA-Public Use
  Company Number: FR-JNJFOC-20061001994

PATIENT
  Age: 80 Year
  Sex: Male

DRUGS (2)
  1. REMINYL [Suspect]
     Indication: DEMENTIA ALZHEIMER'S TYPE
     Dosage: FOR SEVERAL YEARS
     Route: 048
  2. REMINYL [Suspect]
     Indication: DRUG USE FOR UNKNOWN INDICATION
     Route: 065

REACTIONS (4)
  - CARDIAC FAILURE [None]
  - DEHYDRATION [None]
  - LUNG INFECTION [None]
  - RENAL FAILURE [None]
